FAERS Safety Report 7340024-8 (Version None)
Quarter: 2011Q1

REPORT INFORMATION
  Report Type: 
  Country: None (occurrence: None)
  Receive Date: 20110309
  Receipt Date: 20110224
  Transmission Date: 20110831
  Serious: Yes (Death, Hospitalization)
  Sender: FDA-Public Use
  Company Number: AU-CELGENEUS-008-C5013-10082744

PATIENT
  Sex: Female
  Weight: 47 kg

DRUGS (11)
  1. MICARDIS [Concomitant]
     Dosage: 80 MILLIGRAM
     Route: 048
  2. CC-5013 [Suspect]
     Indication: MULTIPLE MYELOMA
     Dosage: 25 MILLIGRAM
     Route: 048
     Dates: start: 20100818, end: 20100902
  3. DEXAMETHASONE [Suspect]
     Indication: MULTIPLE MYELOMA
     Route: 065
     Dates: start: 20100818, end: 20100901
  4. PROGOUT [Concomitant]
     Dosage: 300 MILLIGRAM
     Route: 048
  5. TENASE [Concomitant]
     Dosage: 10 MILLIGRAM
     Route: 048
  6. DIFFLAM [Concomitant]
     Dosage: 200 MILLIGRAM
     Route: 048
     Dates: end: 20100902
  7. FELODIPINE [Concomitant]
     Indication: HYPERTENSION
     Dosage: 10 MILLIGRAM
     Route: 048
     Dates: end: 20100902
  8. ASPIRIN [Concomitant]
     Indication: THROMBOSIS PROPHYLAXIS
     Dosage: 100 MILLIGRAM
     Route: 048
     Dates: end: 20100825
  9. ASPIRIN [Concomitant]
     Dosage: 100 MILLIGRAM
     Route: 048
     Dates: end: 20100902
  10. PRESOLOL [Concomitant]
     Indication: HYPERTENSION
     Dosage: 200 MILLIGRAM
     Route: 048
     Dates: end: 20100902
  11. SLOW-K [Concomitant]
     Dosage: 1200 MILLIGRAM
     Route: 048
     Dates: end: 20100902

REACTIONS (2)
  - PSEUDOMONAL SEPSIS [None]
  - PAIN IN EXTREMITY [None]
